FAERS Safety Report 10342364 (Version 1)
Quarter: 2014Q3

REPORT INFORMATION
  Report Type: Spontaneous
  Country: US (occurrence: US)
  Receive Date: 20140725
  Receipt Date: 20140725
  Transmission Date: 20150326
  Serious: No
  Sender: FDA-Public Use
  Company Number: US-GLAXOSMITHKLINE-A1050449A

PATIENT
  Sex: Male

DRUGS (6)
  1. LAMICTAL [Suspect]
     Active Substance: LAMOTRIGINE
     Indication: CONVULSION
     Dosage: 200MG TWICE PER DAY
     Route: 048
     Dates: start: 2010, end: 2013
  2. DEPAKOTE [Concomitant]
     Active Substance: DIVALPROEX SODIUM
  3. KLONOPIN [Concomitant]
     Active Substance: CLONAZEPAM
  4. LAMOTRIGINE. [Suspect]
     Active Substance: LAMOTRIGINE
     Indication: EPILEPSY
     Route: 048
     Dates: start: 2013, end: 2013
  5. KEPPRA [Concomitant]
     Active Substance: LEVETIRACETAM
  6. TEGRETOL [Concomitant]
     Active Substance: CARBAMAZEPINE

REACTIONS (3)
  - Drug administration error [Unknown]
  - Rash [Not Recovered/Not Resolved]
  - Hypersensitivity [Unknown]
